FAERS Safety Report 8012609-7 (Version None)
Quarter: 2011Q4

REPORT INFORMATION
  Report Type: 
  Country: None (occurrence: None)
  Receive Date: 20111229
  Receipt Date: 20111221
  Transmission Date: 20120403
  Serious: No
  Sender: FDA-Public Use
  Company Number: US-BAYER-2011-122899

PATIENT
  Age: 33 Year
  Sex: Female

DRUGS (3)
  1. DROSPIRENONE AND ETHINYL ESTRADIOL [Suspect]
     Dosage: UNK
     Dates: start: 20070201, end: 20091201
  2. YAZ [Suspect]
     Dosage: UNK
     Dates: start: 20070201, end: 20091201
  3. YASMIN [Suspect]
     Dosage: UNK
     Dates: start: 20070201, end: 20091201

REACTIONS (2)
  - PAIN [None]
  - INJURY [None]
